FAERS Safety Report 4855595-0 (Version None)
Quarter: 2005Q4

REPORT INFORMATION
  Report Type: 
  Country: None (occurrence: None)
  Receive Date: 20051214
  Receipt Date: 20051129
  Transmission Date: 20060501
  Serious: Yes (Death)
  Sender: FDA-Public Use
  Company Number: L05-FIN-05549-11

PATIENT
  Sex: Female

DRUGS (1)
  1. CITALOPRAM HYDROBROMIDE [Suspect]
     Indication: PANIC DISORDER

REACTIONS (5)
  - ACUTE PSYCHOSIS [None]
  - ANTIDEPRESSANT DRUG LEVEL DECREASED [None]
  - COMPLETED SUICIDE [None]
  - DRUG EXPOSURE DURING PREGNANCY [None]
  - PREGNANCY [None]
